FAERS Safety Report 6037064-8 (Version None)
Quarter: 2009Q1

REPORT INFORMATION
  Report Type: 
  Country: None (occurrence: None)
  Receive Date: 20090114
  Receipt Date: 20090105
  Transmission Date: 20090719
  Serious: Yes (Other)
  Sender: FDA-Public Use
  Company Number: US-JNJFOC-20090101127

PATIENT
  Sex: Female

DRUGS (2)
  1. MONISTAT 7 [Suspect]
     Route: 067
  2. MONISTAT 7 [Suspect]
     Indication: FUNGAL INFECTION
     Route: 067

REACTIONS (2)
  - HYPERSENSITIVITY [None]
  - NERVE INJURY [None]
